FAERS Safety Report 25884535 (Version 2)
Quarter: 2025Q4

REPORT INFORMATION
  Report Type: Report from Study
  Country: IN (occurrence: IN)
  Receive Date: 20251006
  Receipt Date: 20251230
  Transmission Date: 20260118
  Serious: Yes (Other)
  Sender: NOVARTIS
  Company Number: IN-002147023-NVSC2024IN086106

PATIENT
  Sex: Female

DRUGS (3)
  1. RIBOCICLIB [Suspect]
     Active Substance: RIBOCICLIB
     Indication: Breast cancer metastatic
     Dosage: 400 MG, QD
     Route: 048
     Dates: start: 20230504
  2. RIBOCICLIB [Suspect]
     Active Substance: RIBOCICLIB
     Indication: Breast cancer
     Dosage: 600 MG, QD
     Route: 048
  3. RIBOCICLIB [Suspect]
     Active Substance: RIBOCICLIB
     Dosage: 400 MG, BID
     Route: 048

REACTIONS (15)
  - Thrombocytopenia [Recovering/Resolving]
  - Tricuspid valve incompetence [Unknown]
  - Aortic valve incompetence [Unknown]
  - Myalgia [Recovering/Resolving]
  - Diarrhoea [Recovering/Resolving]
  - Cough [Unknown]
  - Pyrexia [Unknown]
  - Arthralgia [Unknown]
  - Laboratory test abnormal [Unknown]
  - Full blood count abnormal [Unknown]
  - Mitral valve disease [Unknown]
  - Diastolic dysfunction [Unknown]
  - Aortic valve thickening [Unknown]
  - Off label use [Unknown]
  - Incorrect dose administered [Unknown]
